FAERS Safety Report 14894481 (Version 1)
Quarter: 2018Q2

REPORT INFORMATION
  Report Type: Report from Study
  Country: US (occurrence: US)
  Receive Date: 20180515
  Receipt Date: 20180515
  Transmission Date: 20180711
  Serious: Yes (Death)
  Sender: FDA-Public Use
  Company Number: US-ASTRAZENECA-2017SF18739

PATIENT
  Age: 18253 Day
  Sex: Female

DRUGS (1)
  1. IRESSA [Suspect]
     Active Substance: GEFITINIB
     Indication: NON-SMALL CELL LUNG CANCER
     Route: 048
     Dates: start: 20171010

REACTIONS (3)
  - Skin discolouration [Unknown]
  - Death [Fatal]
  - Dry skin [Unknown]

NARRATIVE: CASE EVENT DATE: 20171110
